FAERS Safety Report 6026335-7 (Version None)
Quarter: 2008Q4

REPORT INFORMATION
  Report Type: 
  Country: None (occurrence: None)
  Receive Date: 20081222
  Receipt Date: 20081010
  Transmission Date: 20090506
  Serious: No
  Sender: FDA-Public Use
  Company Number: US-WYE-H06347508

PATIENT
  Age: 50 Year
  Sex: Female
  Weight: 140.74 kg

DRUGS (6)
  1. PRISTIQ [Suspect]
     Indication: DEPRESSION
     Dosage: 50 MG, 1X PER 1 DAY, ORAL
     Route: 048
     Dates: start: 20080924
  2. JANUVIA (SITAGLIPTIN) [Concomitant]
  3. LISINOPRIL [Concomitant]
  4. METOPROLOL TARTRATE [Concomitant]
  5. ASPIRIN [Concomitant]
  6. FISH OIL, HYDROGENATED (FISH OIL, HYDROGENATED) [Concomitant]

REACTIONS (3)
  - BLOOD GLUCOSE DECREASED [None]
  - COLD SWEAT [None]
  - TREMOR [None]
